FAERS Safety Report 7822947-6 (Version None)
Quarter: 2011Q4

REPORT INFORMATION
  Report Type: 
  Country: None (occurrence: None)
  Receive Date: 20111018
  Receipt Date: 20101209
  Transmission Date: 20120403
  Serious: No
  Sender: FDA-Public Use
  Company Number: US-ASTRAZENECA-2010SE58436

PATIENT
  Age: 67 Year
  Sex: Female
  Weight: 68.5 kg

DRUGS (3)
  1. PREDNISONE [Concomitant]
     Indication: INFLAMMATION
  2. AUGMENTIN '125' [Concomitant]
  3. SYMBICORT [Suspect]
     Indication: ASTHMA
     Dosage: 320 MCG BID
     Route: 055
     Dates: start: 20080101

REACTIONS (3)
  - NASOPHARYNGITIS [None]
  - INFLAMMATION [None]
  - DYSPNOEA [None]
